FAERS Safety Report 16753941 (Version 1)
Quarter: 2019Q3

REPORT INFORMATION
  Report Type: Spontaneous
  Country: HR (occurrence: HR)
  Receive Date: 20190829
  Receipt Date: 20190829
  Transmission Date: 20191005
  Serious: Yes (Other)
  Sender: FDA-Public Use
  Company Number: HR-BAYER-2019-156261

PATIENT
  Age: 13 Year
  Sex: Female

DRUGS (2)
  1. PAROXETINE. [Suspect]
     Active Substance: PAROXETINE
     Dosage: 200 MG
     Route: 048
  2. CLARITINE 10 MG [Suspect]
     Active Substance: LORATADINE
     Dosage: 50 MG, UNK
     Route: 048

REACTIONS (4)
  - Tremor [Unknown]
  - Trismus [Unknown]
  - Intentional overdose [Unknown]
  - Suicide attempt [Unknown]

NARRATIVE: CASE EVENT DATE: 20190423
